FAERS Safety Report 7623164-5 (Version None)
Quarter: 2011Q3

REPORT INFORMATION
  Report Type: 
  Country: None (occurrence: None)
  Receive Date: 20110720
  Receipt Date: 20110712
  Transmission Date: 20111222
  Serious: Yes (Hospitalization)
  Sender: FDA-Public Use
  Company Number: PHHY2010DE68519

PATIENT
  Sex: Male
  Weight: 85 kg

DRUGS (9)
  1. RITALIN [Suspect]
     Indication: ATTENTION DEFICIT/HYPERACTIVITY DISORDER
     Dosage: 20 MG, QD
     Route: 048
     Dates: start: 20090101
  2. RITALIN [Suspect]
     Dosage: 30 MG, DAILY
     Route: 048
  3. SEROQUEL [Concomitant]
     Indication: PSYCHOTIC DISORDER
     Dosage: 800 MG, QD
     Route: 048
  4. DIAZEPAM [Concomitant]
     Indication: ANXIETY
     Dosage: 10 MG, QD, AT NEED
     Route: 048
  5. SUBOXONE [Concomitant]
     Indication: DRUG DEPENDENCE
     Dosage: 2.5 MG, DAILY
     Dates: start: 20101016
  6. DIAZEPAM [Concomitant]
     Dosage: 30 MG, DAILY
     Route: 048
     Dates: start: 20100929, end: 20101103
  7. RITALIN [Suspect]
     Dosage: 15 MG, DAILY
     Route: 048
     Dates: start: 20101014
  8. DIAZEPAM [Concomitant]
     Dosage: 20 MG,DAILY
     Route: 048
     Dates: start: 20101103
  9. RITALIN [Suspect]
     Dosage: 20 MG, QD
     Route: 048
     Dates: start: 20101007

REACTIONS (6)
  - POLYDIPSIA [None]
  - SUSPICIOUSNESS [None]
  - CONDITION AGGRAVATED [None]
  - OBSESSIVE-COMPULSIVE DISORDER [None]
  - EXHIBITIONISM [None]
  - JUDGEMENT IMPAIRED [None]
